FAERS Safety Report 9807518 (Version 1)
Quarter: 2014Q1

REPORT INFORMATION
  Report Type: Spontaneous
  Country: US (occurrence: US)
  Receive Date: 20140110
  Receipt Date: 20140110
  Transmission Date: 20141002
  Serious: No
  Sender: FDA-Public Use
  Company Number: US-SA-2013SA110597

PATIENT
  Sex: Male
  Weight: 120 kg

DRUGS (8)
  1. PLAVIX [Suspect]
     Indication: CEREBROVASCULAR ACCIDENT
     Dosage: TAKEN FROM- 2 YEARS
     Route: 048
  2. CLOPIDOGREL BISULFATE [Suspect]
     Dosage: TAKEN FROM- SUMMER 2013
     Route: 065
     Dates: start: 2013
  3. FUROSEMIDE [Concomitant]
  4. COREG [Concomitant]
  5. KLOR-CON [Concomitant]
  6. ALLOPURINOL [Concomitant]
  7. ASPIRIN [Concomitant]
  8. AVODART [Concomitant]

REACTIONS (4)
  - Fall [Unknown]
  - Contusion [Unknown]
  - Dizziness [Unknown]
  - Epistaxis [Unknown]
